FAERS Safety Report 24018705 (Version 1)
Quarter: 2024Q2

REPORT INFORMATION
  Report Type: Spontaneous
  Country: US (occurrence: None)
  Receive Date: 20240626
  Receipt Date: 20240626
  Transmission Date: 20240716
  Serious: Yes (Other)
  Sender: FDA-Public Use
  Company Number: None

PATIENT
  Age: 54 Year
  Sex: Female
  Weight: 108.4 kg

DRUGS (5)
  1. DALFAMPRIDINE [Suspect]
     Active Substance: DALFAMPRIDINE
     Indication: Multiple sclerosis
     Dosage: FREQUENCY : TWICE A DAY;?
     Route: 048
     Dates: start: 20230601, end: 20240620
  2. MYRBETRIQ [Concomitant]
     Active Substance: MIRABEGRON
  3. GABAPENTIN [Concomitant]
  4. PAROXETINE [Concomitant]
  5. DOCUSATE SODIUM [Concomitant]

REACTIONS (2)
  - Confusional state [None]
  - Therapy cessation [None]

NARRATIVE: CASE EVENT DATE: 20240620
